FAERS Safety Report 11797076 (Version 1)
Quarter: 2015Q4

REPORT INFORMATION
  Report Type: Spontaneous
  Country: CN (occurrence: CN)
  Receive Date: 20151203
  Receipt Date: 20151203
  Transmission Date: 20160305
  Serious: Yes (Death)
  Sender: FDA-Public Use
  Company Number: CN-PFIZER INC-2015410375

PATIENT
  Age: 87 Year
  Sex: Male
  Weight: 54 kg

DRUGS (1)
  1. LIPITOR [Suspect]
     Active Substance: ATORVASTATIN CALCIUM
     Indication: BLOOD CHOLESTEROL INCREASED
     Dosage: 10 MG, 1X/DAY
     Route: 048
     Dates: start: 20131208, end: 20131214

REACTIONS (2)
  - Hepatic function abnormal [Fatal]
  - Blood uric acid increased [Unknown]

NARRATIVE: CASE EVENT DATE: 20131210
